FAERS Safety Report 9254614 (Version 3)
Quarter: 2013Q2

REPORT INFORMATION
  Report Type: Spontaneous
  Country: SE (occurrence: SE)
  Receive Date: 20130425
  Receipt Date: 20130617
  Transmission Date: 20140414
  Serious: No
  Sender: FDA-Public Use
  Company Number: SE-PFIZER INC-2013124913

PATIENT
  Age: 15 Year
  Sex: Female
  Weight: 51 kg

DRUGS (1)
  1. DEPO-PROVERA [Suspect]
     Indication: PREMENSTRUAL DYSPHORIC DISORDER
     Dosage: 150 MG, CYCLIC EVERY 10 WEEKS
     Route: 030
     Dates: start: 201108

REACTIONS (6)
  - Incorrect route of drug administration [Unknown]
  - Off label use [Unknown]
  - Drug ineffective for unapproved indication [Recovered/Resolved]
  - Dry eye [Unknown]
  - Rhinorrhoea [Unknown]
  - Nasal congestion [Unknown]
